FAERS Safety Report 7048110-7 (Version None)
Quarter: 2010Q4

REPORT INFORMATION
  Report Type: 
  Country: None (occurrence: None)
  Receive Date: 20101015
  Receipt Date: 20101005
  Transmission Date: 20110411
  Serious: Yes (Other)
  Sender: FDA-Public Use
  Company Number: GXKR2010US11240

PATIENT
  Age: 50 Year
  Sex: Female

DRUGS (1)
  1. TACROLIMUS (NGX) [Suspect]
     Indication: IMMUNOSUPPRESSION
     Route: 065

REACTIONS (7)
  - EXERTIONAL HEADACHE [None]
  - HEADACHE [None]
  - INTRACRANIAL HYPOTENSION [None]
  - NAUSEA [None]
  - PHONOPHOBIA [None]
  - PHOTOPHOBIA [None]
  - VOMITING [None]
